FAERS Safety Report 8400864-0 (Version None)
Quarter: 2012Q2

REPORT INFORMATION
  Report Type: 
  Country: None (occurrence: None)
  Receive Date: 20120601
  Receipt Date: 20120525
  Transmission Date: 20120825
  Serious: Yes (Hospitalization)
  Sender: FDA-Public Use
  Company Number: DK-B.I. PHARMACEUTICALS,INC./RIDGEFIELD-2012-SW-00437DB

PATIENT
  Sex: Female
  Weight: 56 kg

DRUGS (3)
  1. DIGOXIN [Concomitant]
     Dates: start: 19970101
  2. VERALOC RETARD [Concomitant]
     Dates: start: 20010101
  3. PRADAXA [Suspect]
     Indication: ATRIAL FIBRILLATION
     Dosage: 220 MG
     Route: 048
     Dates: start: 20120228, end: 20120312

REACTIONS (1)
  - SWOLLEN TONGUE [None]
